FAERS Safety Report 9143295 (Version 4)
Quarter: 2013Q2

REPORT INFORMATION
  Report Type: Spontaneous
  Country: JP (occurrence: JP)
  Receive Date: 20130306
  Receipt Date: 20130529
  Transmission Date: 20140414
  Serious: Yes (Other)
  Sender: FDA-Public Use
  Company Number: JP-ALLERGAN-1303074US

PATIENT
  Age: 66 Year
  Sex: Male

DRUGS (7)
  1. BOTOX [Suspect]
     Indication: MUSCLE SPASMS
     Dosage: 240 UNITS, SINGLE
     Route: 030
     Dates: start: 20121227, end: 20121227
  2. WARFARIN [Concomitant]
  3. MYONAL                             /01071502/ [Concomitant]
  4. MAGLAX [Concomitant]
  5. HOKUNALIN [Concomitant]
  6. LOXONIN-60 [Concomitant]
  7. ALEVIATIN                          /00017401/ [Concomitant]

REACTIONS (1)
  - Convulsion [Recovered/Resolved]
